FAERS Safety Report 4419743-9 (Version None)
Quarter: 2004Q3

REPORT INFORMATION
  Report Type: 
  Country: None (occurrence: None)
  Receive Date: 20040805
  Receipt Date: 20040802
  Transmission Date: 20050211
  Serious: Yes (Hospitalization)
  Sender: FDA-Public Use
  Company Number: DL2004185

PATIENT
  Age: 22 Year
  Sex: Female

DRUGS (2)
  1. MIFEPRISTONE TABLETS, 200 MG (DANCO LABS) [Suspect]
     Indication: ABORTION INDUCED
     Dosage: 200 MG, ORAL
     Route: 048
     Dates: start: 20040520
  2. MISOPROSTOL [Suspect]
     Dosage: 800 MCG, VAGINAL
     Route: 067
     Dates: start: 20040522

REACTIONS (10)
  - ABDOMINAL PAIN [None]
  - ABDOMINAL REBOUND TENDERNESS [None]
  - ABDOMINAL RIGIDITY [None]
  - ADNEXA UTERI PAIN [None]
  - HAEMATOCRIT DECREASED [None]
  - LEUKOCYTOSIS [None]
  - PURULENT DISCHARGE [None]
  - PYREXIA [None]
  - SHIFT TO THE LEFT [None]
  - UTERINE CERVICAL PAIN [None]
